FAERS Safety Report 4527737-8 (Version None)
Quarter: 2004Q4

REPORT INFORMATION
  Report Type: 
  Country: None (occurrence: None)
  Receive Date: 20041215
  Receipt Date: 20041208
  Transmission Date: 20050328
  Serious: Yes (Other)
  Sender: FDA-Public Use
  Company Number: DE-ROCHE-388730

PATIENT
  Age: 58 Year
  Sex: Female
  Weight: 103 kg

DRUGS (12)
  1. TORSEMIDE [Suspect]
     Route: 065
  2. ENBREL [Interacting]
     Indication: ANKYLOSING SPONDYLITIS
     Route: 058
     Dates: start: 20020415
  3. DICLAC [Interacting]
     Indication: RHEUMATOID ARTHRITIS
     Route: 065
  4. PREDNISOLONE [Interacting]
     Indication: RHEUMATOID ARTHRITIS
     Route: 065
  5. FELODIPINE [Interacting]
     Route: 065
  6. BISOPROLOL FUMARATE AND HYDROCHLOROTHIAZIDE [Interacting]
     Route: 065
  7. CALCIPRAT [Interacting]
     Dosage: GENERIC CALCIUM CARBONATE/CALCIFEROL.
     Route: 065
  8. OMEPRAZOLE [Interacting]
     Route: 065
  9. FOSAMAX [Interacting]
     Route: 065
  10. AEQUAMEN [Interacting]
     Indication: TINNITUS
     Dosage: SECONDARY INDICATION VERTIGO.
     Route: 065
  11. METHOTREXATE [Interacting]
     Route: 065
     Dates: end: 20040715
  12. NOT KNOWN [Concomitant]
     Dates: end: 20040715

REACTIONS (7)
  - ALANINE AMINOTRANSFERASE INCREASED [None]
  - ASPARTATE AMINOTRANSFERASE INCREASED [None]
  - CONDITION AGGRAVATED [None]
  - DRUG INTERACTION [None]
  - GAMMA-GLUTAMYLTRANSFERASE INCREASED [None]
  - HEPATIC ENZYME INCREASED [None]
  - RHEUMATOID ARTHRITIS [None]
